FAERS Safety Report 7346162-8 (Version None)
Quarter: 2011Q1

REPORT INFORMATION
  Report Type: 
  Country: None (occurrence: None)
  Receive Date: 20110311
  Receipt Date: 20110228
  Transmission Date: 20110831
  Serious: Yes (Other)
  Sender: FDA-Public Use
  Company Number: PHHY2010MX43090

PATIENT
  Sex: Female

DRUGS (2)
  1. ACLASTA [Suspect]
     Indication: OSTEOPOROSIS
     Dosage: 5 MG PER YEAR
     Route: 042
     Dates: start: 20091127
  2. UROFLOX [Concomitant]

REACTIONS (5)
  - URINARY TRACT INFECTION [None]
  - RENAL PAIN [None]
  - BLOOD URINE PRESENT [None]
  - UTERINE LEIOMYOMA [None]
  - NEPHROLITHIASIS [None]
